FAERS Safety Report 11937051 (Version 1)
Quarter: 2016Q1

REPORT INFORMATION
  Report Type: Spontaneous
  Country: US (occurrence: US)
  Receive Date: 20160121
  Receipt Date: 20160121
  Transmission Date: 20160526
  Serious: Yes (Hospitalization, Other)
  Sender: FDA-Public Use
  Company Number: US-DSJP-DSU-2015-120465

PATIENT

DRUGS (8)
  1. AMLODIPINE BESYLATE. [Concomitant]
     Active Substance: AMLODIPINE BESYLATE
     Indication: PRODUCT USED FOR UNKNOWN INDICATION
     Dosage: UNK
  2. CLONIDINE. [Concomitant]
     Active Substance: CLONIDINE
     Indication: PRODUCT USED FOR UNKNOWN INDICATION
     Dosage: 0.2 MG, QD
     Dates: start: 2011, end: 2014
  3. HYDROCODONE [Concomitant]
     Active Substance: HYDROCODONE
     Indication: PRODUCT USED FOR UNKNOWN INDICATION
     Dosage: 5/500 MG, QD
     Dates: start: 2003, end: 2014
  4. AVALIDE [Concomitant]
     Active Substance: HYDROCHLOROTHIAZIDE\IRBESARTAN
     Indication: PRODUCT USED FOR UNKNOWN INDICATION
     Dosage: UNK
  5. BENICAR HCT [Suspect]
     Active Substance: HYDROCHLOROTHIAZIDE\OLMESARTAN MEDOXOMIL
     Indication: HYPERTENSION
     Dosage: 40/12.5 MG, QD
     Dates: start: 2004, end: 2013
  6. BENICAR HCT [Suspect]
     Active Substance: HYDROCHLOROTHIAZIDE\OLMESARTAN MEDOXOMIL
     Dosage: 20/12.5 MG, QD
     Dates: start: 2004, end: 2013
  7. BENICAR HCT [Suspect]
     Active Substance: HYDROCHLOROTHIAZIDE\OLMESARTAN MEDOXOMIL
     Dosage: UNK
     Dates: start: 2002
  8. BENICAR [Suspect]
     Active Substance: OLMESARTAN MEDOXOMIL
     Indication: HYPERTENSION
     Dosage: 40 MG, QD

REACTIONS (21)
  - Haematochezia [Unknown]
  - Polyp [Unknown]
  - Renal failure [Unknown]
  - Unevaluable event [Unknown]
  - Irritable bowel syndrome [Unknown]
  - Gastrointestinal tract adenoma [Unknown]
  - Renal cyst [Unknown]
  - Intestinal obstruction [Unknown]
  - Gastric ulcer [Unknown]
  - Depression [Unknown]
  - Dizziness [Recovered/Resolved]
  - Pancreatitis acute [Unknown]
  - Anal incontinence [Unknown]
  - Malabsorption [Unknown]
  - Gastrooesophageal reflux disease [Unknown]
  - Pancreatic duct stenosis [Unknown]
  - Diverticulitis [Unknown]
  - Gastrointestinal haemorrhage [Unknown]
  - Inflammatory bowel disease [Unknown]
  - Pancreatolithiasis [Unknown]
  - Proctalgia [Unknown]

NARRATIVE: CASE EVENT DATE: 2004
